FAERS Safety Report 8916108 (Version 1)
Quarter: 2012Q4

REPORT INFORMATION
  Report Type: 
  Country: TR (occurrence: TR)
  Receive Date: 20121120
  Receipt Date: 20121120
  Transmission Date: 20130627
  Serious: Yes (Life-Threatening, Other)
  Sender: FDA-Public Use
  Company Number: PHHY2012TR105353

PATIENT
  Age: 31 Year
  Sex: Male

DRUGS (5)
  1. DEXAMETHASONE SANDOZ [Suspect]
     Indication: BURKITT^S LYMPHOMA STAGE I
  2. VINCRISTINE [Suspect]
     Indication: BURKITT^S LYMPHOMA STAGE I
  3. DOXORUBICIN [Suspect]
     Indication: BURKITT^S LYMPHOMA STAGE I
  4. RITUXIMAB [Suspect]
     Indication: BURKITT^S LYMPHOMA STAGE I
  5. CYCLOPHOSPHAMIDE [Suspect]
     Indication: BURKITT^S LYMPHOMA STAGE I

REACTIONS (2)
  - Pancytopenia [Unknown]
  - Febrile neutropenia [Unknown]
